FAERS Safety Report 4321894-4 (Version None)
Quarter: 2004Q1

REPORT INFORMATION
  Report Type: 
  Country: None (occurrence: None)
  Receive Date: 20040317
  Receipt Date: 20040301
  Transmission Date: 20041129
  Serious: Yes (Other)
  Sender: FDA-Public Use
  Company Number: 235681

PATIENT
  Age: 86 Year
  Sex: Female
  Weight: 49 kg

DRUGS (4)
  1. NOVOSEVEN [Suspect]
     Indication: CEREBRAL HAEMORRHAGE
     Dosage: UNK ML, QD, INTRAVENOUS
     Route: 042
     Dates: start: 20040228, end: 20040228
  2. RANITIDINE [Concomitant]
  3. ENALAPRIL MALEATE [Concomitant]
  4. DIGOXIN [Concomitant]

REACTIONS (2)
  - ACUTE MYOCARDIAL INFARCTION [None]
  - ATRIAL FIBRILLATION [None]
